FAERS Safety Report 5940395-0 (Version None)
Quarter: 2008Q4

REPORT INFORMATION
  Report Type: 
  Country: None (occurrence: None)
  Receive Date: 20081104
  Receipt Date: 20081031
  Transmission Date: 20090506
  Serious: Yes (Other)
  Sender: FDA-Public Use
  Company Number: JP-AVENTIS-200810967JP

PATIENT
  Age: 66 Year
  Sex: Female

DRUGS (2)
  1. AMARYL [Suspect]
     Route: 048
  2. UNKNOWN DRUG [Suspect]

REACTIONS (1)
  - PANCREATITIS ACUTE [None]
